FAERS Safety Report 8369476-1 (Version None)
Quarter: 2012Q2

REPORT INFORMATION
  Report Type: 
  Country: None (occurrence: None)
  Receive Date: 20120518
  Receipt Date: 20120516
  Transmission Date: 20120825
  Serious: Yes (Death)
  Sender: FDA-Public Use
  Company Number: US-PFIZER INC-2012119485

PATIENT
  Sex: Female

DRUGS (8)
  1. SUTENT [Suspect]
     Dosage: UNK
     Route: 048
  2. NORVASC [Concomitant]
     Dosage: UNK
  3. SUTENT [Suspect]
     Indication: RENAL CANCER
     Dosage: 50 MG, 1X/DAY
     Route: 048
     Dates: start: 20111001
  4. PERCOCET [Concomitant]
     Dosage: UNK
  5. FOLIC ACID [Concomitant]
     Dosage: UNK
  6. ORPHENADRINE [Concomitant]
     Dosage: UNK
  7. RENVELA [Concomitant]
     Dosage: UNK
  8. MORPHINE SULFATE [Concomitant]
     Dosage: UNK

REACTIONS (1)
  - DEATH [None]
